FAERS Safety Report 24336629 (Version 1)
Quarter: 2024Q3

REPORT INFORMATION
  Report Type: Spontaneous
  Country: JP (occurrence: JP)
  Receive Date: 20240919
  Receipt Date: 20240919
  Transmission Date: 20241017
  Serious: No
  Sender: ROCHE
  Company Number: JP-CHUGAI-2023046609

PATIENT
  Age: 60 Year
  Sex: Female

DRUGS (12)
  1. TAMIFLU [Suspect]
     Active Substance: OSELTAMIVIR PHOSPHATE
     Indication: Antiviral prophylaxis
     Dosage: 75 MILLIGRAM, QD
     Route: 065
     Dates: start: 20231129, end: 20231203
  2. TAMIFLU [Suspect]
     Active Substance: OSELTAMIVIR PHOSPHATE
     Indication: Influenza
     Dosage: 75 MILLIGRAM, QD
     Route: 065
     Dates: start: 20231207, end: 20231207
  3. TAMIFLU [Suspect]
     Active Substance: OSELTAMIVIR PHOSPHATE
     Dosage: 75 MILLIGRAM, BID
     Route: 065
     Dates: start: 20231208, end: 20231212
  4. DANTRIUM [Concomitant]
     Active Substance: DANTROLENE SODIUM
     Dosage: 1 CAP, BID
  5. SENNOSIDES A AND B [Concomitant]
     Active Substance: SENNOSIDES A AND B
     Dosage: 2 T, QD
  6. SODIUM PICOSULFATE [Concomitant]
     Active Substance: SODIUM PICOSULFATE
     Dosage: 2 T, QD
  7. GASCON [DIMETICONE] [Concomitant]
     Dosage: 1 T, TID
  8. MOSAPRIDE CITRATE [Concomitant]
     Active Substance: MOSAPRIDE CITRATE
     Dosage: 1 T, TID
  9. CARBIDOPA\LEVODOPA [Concomitant]
     Active Substance: CARBIDOPA\LEVODOPA
     Dosage: 1 T, TID
  10. VONOPRAZAN FUMARATE [Concomitant]
     Active Substance: VONOPRAZAN FUMARATE
     Dosage: 2 T, QD
  11. ONEALFA [Concomitant]
     Active Substance: ALFACALCIDOL
     Dosage: 1 T, QD
  12. SODIUM FERROUS CITRATE [Concomitant]
     Active Substance: SODIUM FERROUS CITRATE
     Dosage: 1 T, QD
     Dates: start: 20231207

REACTIONS (2)
  - Dermatitis diaper [Unknown]
  - Influenza [Unknown]

NARRATIVE: CASE EVENT DATE: 20231201
